FAERS Safety Report 14907967 (Version 2)
Quarter: 2018Q4

REPORT INFORMATION
  Report Type: Spontaneous
  Country: TN (occurrence: TN)
  Receive Date: 20180517
  Receipt Date: 20181010
  Transmission Date: 20190204
  Serious: Yes (Hospitalization, Other)
  Sender: FDA-Public Use
  Company Number: PHHY2018TN005108

PATIENT
  Age: 20 Year
  Sex: Female

DRUGS (1)
  1. CIPROFLOXACIN. [Suspect]
     Active Substance: CIPROFLOXACIN
     Indication: SUICIDE ATTEMPT
     Dosage: 7 G, UNK
     Route: 048

REACTIONS (7)
  - Renal tubular necrosis [Unknown]
  - Acute kidney injury [Unknown]
  - Toxicity to various agents [Unknown]
  - Nephropathy toxic [Unknown]
  - Intentional overdose [Unknown]
  - Abdominal pain [Unknown]
  - Vomiting [Unknown]
